FAERS Safety Report 12154994 (Version 1)
Quarter: 2016Q1

REPORT INFORMATION
  Report Type: Spontaneous
  Country: GB (occurrence: GB)
  Receive Date: 20160307
  Receipt Date: 20160307
  Transmission Date: 20160526
  Serious: Yes (Hospitalization)
  Sender: FDA-Public Use
  Company Number: GB-IPCA LABORATORIES LIMITED-E2B_00000017

PATIENT
  Age: 68 Year
  Sex: Male

DRUGS (5)
  1. METFORMIN HYDROCHLORIDE. [Suspect]
     Active Substance: METFORMIN HYDROCHLORIDE
  2. AMLODIPINE BESILATE [Suspect]
     Active Substance: AMLODIPINE BESYLATE
     Route: 048
  3. CITALOPRAM [Suspect]
     Active Substance: CITALOPRAM HYDROBROMIDE
  4. CLOZAPINE. [Suspect]
     Active Substance: CLOZAPINE
  5. VALPROATE [Suspect]
     Active Substance: VALPROATE SODIUM

REACTIONS (5)
  - Overdose [Unknown]
  - Confusional state [Unknown]
  - Tachycardia [Unknown]
  - Metabolic acidosis [Recovering/Resolving]
  - Hypotension [Recovering/Resolving]
